FAERS Safety Report 8272261-2 (Version None)
Quarter: 2012Q2

REPORT INFORMATION
  Report Type: 
  Country: None (occurrence: None)
  Receive Date: 20120410
  Receipt Date: 20120123
  Transmission Date: 20120825
  Serious: No
  Sender: FDA-Public Use
  Company Number: US-TEVA-2011000142

PATIENT
  Sex: Female
  Weight: 50.394 kg

DRUGS (7)
  1. LEVOTHYROXINE SODIUM [Concomitant]
     Dates: start: 19800101
  2. IBUPROFEN [Concomitant]
  3. FLURAZEPAM [Concomitant]
     Indication: INITIAL INSOMNIA
     Dates: start: 19880101
  4. LORAZEPAM [Concomitant]
  5. VICODIN [Concomitant]
  6. NUVIGIL [Suspect]
     Indication: POOR QUALITY SLEEP
     Dosage: 150 MILLIGRAM;
     Route: 048
     Dates: start: 20110106, end: 20110108
  7. ZOLPIDEM TARTRATE [Concomitant]

REACTIONS (5)
  - INSOMNIA [None]
  - MIDDLE INSOMNIA [None]
  - MALAISE [None]
  - TERMINAL INSOMNIA [None]
  - BALANCE DISORDER [None]
